FAERS Safety Report 23808413 (Version 1)
Quarter: 2024Q2

REPORT INFORMATION
  Report Type: Spontaneous
  Country: US (occurrence: US)
  Receive Date: 20240502
  Receipt Date: 20240502
  Transmission Date: 20240715
  Serious: Yes (Other)
  Sender: FDA-Public Use
  Company Number: US-ABBVIE-5741968

PATIENT
  Sex: Female

DRUGS (1)
  1. REFRESH CLASSIC [Suspect]
     Active Substance: POLYVINYL ALCOHOL\POVIDONE
     Indication: Ocular hyperaemia
     Route: 047

REACTIONS (3)
  - Macular degeneration [Unknown]
  - Eye irritation [Unknown]
  - Blindness unilateral [Unknown]
